FAERS Safety Report 15537919 (Version 1)
Quarter: 2018Q4

REPORT INFORMATION
  Report Type: Spontaneous
  Country: US (occurrence: US)
  Receive Date: 20181022
  Receipt Date: 20181022
  Transmission Date: 20190205
  Serious: Yes (Other)
  Sender: FDA-Public Use
  Company Number: US-SA-2017SA260933

PATIENT
  Age: 51 Year
  Sex: Female
  Weight: 94 kg

DRUGS (13)
  1. TAXOTERE [Suspect]
     Active Substance: DOCETAXEL
     Indication: BREAST CANCER FEMALE
     Dosage: 145 MG, Q3W
     Route: 042
     Dates: start: 20031002, end: 20031002
  2. METHOTREXATE. [Concomitant]
     Active Substance: METHOTREXATE
  3. LISINOPRIL. [Concomitant]
     Active Substance: LISINOPRIL
  4. TAXOTERE [Suspect]
     Active Substance: DOCETAXEL
     Dosage: 145 MG, Q3W
     Route: 042
     Dates: start: 20031208, end: 20031208
  5. RASUVO [Concomitant]
     Active Substance: METHOTREXATE SODIUM
  6. CARDIZEM [DILTIAZEM] [Concomitant]
  7. NEOSAR [Concomitant]
     Active Substance: CYCLOPHOSPHAMIDE
  8. FLUOROURACIL. [Concomitant]
     Active Substance: FLUOROURACIL
  9. ARIMIDEX [Concomitant]
     Active Substance: ANASTROZOLE
     Dosage: UNK
     Dates: start: 20050909, end: 20100930
  10. CYTOXAN [Concomitant]
     Active Substance: CYCLOPHOSPHAMIDE
  11. ADRIAMYCIN [DOXORUBICIN HYDROCHLORIDE] [Concomitant]
  12. 5-FLUOROURACIL [FLUOROURACIL SODIUM] [Concomitant]
  13. PAXIL [PAROXETINE HYDROCHLORIDE] [Concomitant]

REACTIONS (1)
  - Alopecia [Not Recovered/Not Resolved]

NARRATIVE: CASE EVENT DATE: 20170101
